FAERS Safety Report 13468769 (Version 1)
Quarter: 2017Q2

REPORT INFORMATION
  Report Type: Report from Study
  Country: BR (occurrence: BR)
  Receive Date: 20170421
  Receipt Date: 20170421
  Transmission Date: 20170830
  Serious: Yes (Death, Hospitalization)
  Sender: FDA-Public Use
  Company Number: PHHY2017BR059432

PATIENT
  Sex: Male
  Weight: 100 kg

DRUGS (1)
  1. DIOVAN AMLO FIX [Suspect]
     Active Substance: AMLODIPINE\VALSARTAN
     Indication: HYPERTENSION
     Dosage: (AMLODIPINE 5/VALSARTAN 320 MG), QD
     Route: 048

REACTIONS (6)
  - Somnolence [Fatal]
  - Malaise [Fatal]
  - Pulmonary mass [Unknown]
  - Pyrexia [Fatal]
  - Pneumonia [Unknown]
  - Influenza [Fatal]
